FAERS Safety Report 11434324 (Version 1)
Quarter: 2015Q3

REPORT INFORMATION
  Report Type: Spontaneous
  Country: ZA (occurrence: ZA)
  Receive Date: 20150831
  Receipt Date: 20150831
  Transmission Date: 20151125
  Serious: Yes (Other)
  Sender: FDA-Public Use
  Company Number: ZA-SA-2015SA129998

PATIENT
  Age: 42 Year
  Sex: Male

DRUGS (4)
  1. OXALIWIN [Suspect]
     Active Substance: OXALIPLATIN
     Indication: RECTAL CANCER
     Dosage: DOSE: BETWEEN 180 MG AND 230 MG?STRENGTH: 100 MG AND 80 MG
     Route: 042
     Dates: start: 20140224, end: 20150814
  2. OXALIWIN [Suspect]
     Active Substance: OXALIPLATIN
     Indication: RECTAL CANCER
     Dosage: DOSE: BETWEEN 180 MG AND 230 MG?STRENGTH: 100 MG AND 80 MG
     Route: 042
     Dates: start: 20140224, end: 20150814
  3. OXALIWIN [Suspect]
     Active Substance: OXALIPLATIN
     Indication: RECTAL CANCER
     Dosage: DOSE: BETWEEN 180 MG AND 230 MG?STRENGTH: 100 MG AND 80 MG
     Route: 042
     Dates: start: 20140224, end: 20150814
  4. OXALIWIN [Suspect]
     Active Substance: OXALIPLATIN
     Indication: RECTAL CANCER
     Dosage: DOSE: BETWEEN 180 MG AND 230 MG?STRENGTH: 100 MG AND 80 MG
     Route: 042
     Dates: start: 20140224, end: 20150814

REACTIONS (1)
  - Erectile dysfunction [Not Recovered/Not Resolved]

NARRATIVE: CASE EVENT DATE: 201412
